FAERS Safety Report 25526789 (Version 1)
Quarter: 2025Q3

REPORT INFORMATION
  Report Type: Report from Study
  Country: CA (occurrence: CA)
  Receive Date: 20250707
  Receipt Date: 20250707
  Transmission Date: 20251020
  Serious: Yes (Other)
  Sender: HLS THERAPEUTICS
  Company Number: CA-HLS-202501682

PATIENT
  Sex: Male

DRUGS (1)
  1. CLOZARIL [Suspect]
     Active Substance: CLOZAPINE
     Indication: Product used for unknown indication
     Route: 048
     Dates: start: 20110517

REACTIONS (4)
  - Metastases to lymph nodes [Unknown]
  - Vascular compression [Unknown]
  - Metastases to bone [Unknown]
  - Prostate cancer metastatic [Unknown]
